FAERS Safety Report 9279402 (Version 5)
Quarter: 2014Q2

REPORT INFORMATION
  Report Type: Spontaneous
  Country: US (occurrence: US)
  Receive Date: 20130508
  Receipt Date: 20140619
  Transmission Date: 20141212
  Serious: Yes (Hospitalization, Other)
  Sender: FDA-Public Use
  Company Number: US-009507513-1305USA003011

PATIENT
  Sex: Female
  Weight: 49.89 kg

DRUGS (2)
  1. NUVARING [Suspect]
     Indication: CONTRACEPTION
     Dosage: UNK
     Route: 067
     Dates: start: 201011, end: 20111210
  2. NUVARING [Suspect]
     Indication: MENSTRUATION IRREGULAR

REACTIONS (16)
  - Chest pain [Unknown]
  - Pulmonary embolism [Unknown]
  - Hypersensitivity [Unknown]
  - Polycystic ovaries [Unknown]
  - Pain in extremity [Unknown]
  - Off label use [Recovered/Resolved]
  - Ovarian cyst ruptured [Unknown]
  - Chest pain [Unknown]
  - Anxiety [Unknown]
  - Stress [Unknown]
  - Haemoptysis [Recovered/Resolved]
  - Pain in extremity [Unknown]
  - Nausea [Unknown]
  - Dizziness [Unknown]
  - Headache [Unknown]
  - Constipation [Recovered/Resolved]
